FAERS Safety Report 22143342 (Version 1)
Quarter: 2023Q1

REPORT INFORMATION
  Report Type: Spontaneous
  Country: GB (occurrence: GB)
  Receive Date: 20230327
  Receipt Date: 20230327
  Transmission Date: 20230417
  Serious: Yes (Life-Threatening, Other)
  Sender: FDA-Public Use
  Company Number: GB-MHRA-MED-202303151511288910-CYNDB

PATIENT
  Age: 59 Year
  Sex: Female

DRUGS (6)
  1. ROCURONIUM [Interacting]
     Active Substance: ROCURONIUM BROMIDE
     Indication: Induction of anaesthesia
     Dosage: UNK
     Route: 065
  2. PHOLCODINE [Interacting]
     Active Substance: PHOLCODINE
     Indication: Cough
     Dosage: UNK (2 X 5ML TEASPOONS 4 TIMES A DAY)
     Route: 065
     Dates: start: 202212, end: 20230129
  3. PHOLCODINE [Interacting]
     Active Substance: PHOLCODINE
     Dosage: UNK
     Route: 065
     Dates: start: 202301
  4. NAPROXEN [Concomitant]
     Active Substance: NAPROXEN
     Dosage: UNK
     Route: 065
  5. OMEPRAZOLE [Concomitant]
     Active Substance: OMEPRAZOLE
     Dosage: UNK
     Route: 065
  6. CITALOPRAM [Concomitant]
     Active Substance: CITALOPRAM HYDROBROMIDE
     Dosage: UNK
     Route: 065

REACTIONS (3)
  - Anaphylactic reaction [Recovering/Resolving]
  - Circulatory collapse [Unknown]
  - Drug interaction [Unknown]

NARRATIVE: CASE EVENT DATE: 20230221
